FAERS Safety Report 6206481-5 (Version None)
Quarter: 2009Q2

REPORT INFORMATION
  Report Type: 
  Country: None (occurrence: None)
  Receive Date: 20090528
  Receipt Date: 20090518
  Transmission Date: 20091009
  Serious: Yes (Life-Threatening)
  Sender: FDA-Public Use
  Company Number: DE-AMGEN-US345345

PATIENT
  Sex: Female
  Weight: 66 kg

DRUGS (11)
  1. ENBREL [Suspect]
     Indication: VASCULITIS
     Route: 058
     Dates: start: 20040701, end: 20060301
  2. HUMIRA [Suspect]
     Indication: VASCULITIS
     Route: 058
     Dates: start: 20060301, end: 20070501
  3. LANTAREL [Suspect]
     Dosage: UNKNOWN
     Route: 065
     Dates: start: 19980701, end: 20041201
  4. MABTHERA [Suspect]
     Indication: VASCULITIS
     Route: 042
     Dates: start: 20080222, end: 20080313
  5. ORENCIA [Suspect]
     Indication: VASCULITIS
     Dosage: 750 MG
     Route: 042
     Dates: start: 20081027, end: 20081112
  6. AZATHIOPRINE [Suspect]
     Route: 048
     Dates: start: 20070901, end: 20071101
  7. CYCLOPHOSPHAMIDE [Suspect]
     Dosage: UNKNOWN
     Route: 065
     Dates: start: 20070601, end: 20070701
  8. REMICADE [Suspect]
     Indication: VASCULITIS
     Route: 042
     Dates: start: 20070516, end: 20070726
  9. OMEPRAZOLE [Concomitant]
     Route: 048
  10. ASPIRIN [Concomitant]
     Route: 048
  11. PREDNISOLONE [Concomitant]
     Indication: JUVENILE ARTHRITIS
     Route: 048

REACTIONS (3)
  - DRUG INEFFECTIVE [None]
  - LYMPHOMA [None]
  - LYMPHOMATOID PAPULOSIS [None]
